FAERS Safety Report 9719685 (Version 1)
Quarter: 2013Q4

REPORT INFORMATION
  Report Type: Spontaneous
  Country: US (occurrence: US)
  Receive Date: 20131128
  Receipt Date: 20131128
  Transmission Date: 20140711
  Serious: Yes (Other)
  Sender: FDA-Public Use
  Company Number: US-AMGEN-USASP2013083443

PATIENT
  Age: 65 Year
  Sex: Female

DRUGS (7)
  1. NEULASTA [Suspect]
     Indication: PRODUCT USED FOR UNKNOWN INDICATION
     Dosage: UNK
     Route: 065
     Dates: start: 20131113
  2. DOCETAXEL [Concomitant]
     Indication: OVARIAN CANCER
     Dosage: UNK
  3. CARBOPLATIN [Concomitant]
     Indication: OVARIAN CANCER
     Dosage: UNK
  4. ZOFRAN                             /00955301/ [Concomitant]
     Dosage: UNK
  5. DEXAMETHASONE [Concomitant]
     Dosage: UNK
  6. VITAMIN B6 [Concomitant]
     Dosage: 50 MG, UNK
  7. DIOVAN [Concomitant]
     Dosage: UNK

REACTIONS (1)
  - Vasculitis [Unknown]
